FAERS Safety Report 19037891 (Version 1)
Quarter: 2021Q1

REPORT INFORMATION
  Report Type: Spontaneous
  Country: CA (occurrence: CA)
  Receive Date: 20210322
  Receipt Date: 20210322
  Transmission Date: 20210420
  Serious: Yes (Other)
  Sender: FDA-Public Use
  Company Number: CA-MYLANLABS-2021M1014796

PATIENT
  Age: 21 Year
  Sex: Female

DRUGS (1)
  1. INDAYO [Suspect]
     Active Substance: ETHINYL ESTRADIOL\LEVONORGESTREL
     Indication: HORMONAL CONTRACEPTION
     Dosage: 1 EVERY 1 DAYS
     Route: 048

REACTIONS (2)
  - Pregnancy on oral contraceptive [Unknown]
  - Product supply issue [Unknown]
